FAERS Safety Report 20876550 (Version 3)
Quarter: 2022Q2

REPORT INFORMATION
  Report Type: Report from Study
  Country: NL (occurrence: NL)
  Receive Date: 20220526
  Receipt Date: 20220603
  Transmission Date: 20220721
  Serious: Yes (Hospitalization)
  Sender: FDA-Public Use
  Company Number: NL-ABBVIE-22K-114-4408194-00

PATIENT
  Age: 73 Year
  Sex: Male

DRUGS (3)
  1. CARBIDOPA\LEVODOPA [Suspect]
     Active Substance: CARBIDOPA\LEVODOPA
     Indication: Parkinson^s disease
     Dosage: MD: 12.0ML CD: 4.0ML ED: 2.0ML
     Route: 050
     Dates: start: 20220509, end: 202205
  2. CARBIDOPA\LEVODOPA [Suspect]
     Active Substance: CARBIDOPA\LEVODOPA
     Dosage: MD: 15.0 ML, CD: 4.3 ML/H, ED: 2.0 ML, CND: 2.8 ML/H, END: 2.0 ML
     Route: 050
     Dates: start: 202205
  3. LEVODOPA, CARBIDOPA 125 [Concomitant]
     Indication: Parkinson^s disease
     Dates: start: 202205

REACTIONS (18)
  - Restlessness [Recovered/Resolved]
  - On and off phenomenon [Recovered/Resolved]
  - Mobility decreased [Not Recovered/Not Resolved]
  - Nocturia [Not Recovered/Not Resolved]
  - Gastrointestinal disorder [Not Recovered/Not Resolved]
  - Discomfort [Not Recovered/Not Resolved]
  - Feeling abnormal [Unknown]
  - Muscle rigidity [Not Recovered/Not Resolved]
  - Muscle spasms [Not Recovered/Not Resolved]
  - Abnormal dreams [Not Recovered/Not Resolved]
  - Freezing phenomenon [Not Recovered/Not Resolved]
  - Hallucination [Recovered/Resolved]
  - Bradykinesia [Not Recovered/Not Resolved]
  - Therapeutic product effect delayed [Not Recovered/Not Resolved]
  - Constipation [Not Recovered/Not Resolved]
  - Pain [Unknown]
  - Abdominal pain upper [Unknown]
  - Unevaluable event [Recovering/Resolving]

NARRATIVE: CASE EVENT DATE: 20220501
